FAERS Safety Report 8133121-0 (Version None)
Quarter: 2012Q1

REPORT INFORMATION
  Report Type: 
  Country: None (occurrence: None)
  Receive Date: 20120213
  Receipt Date: 20120207
  Transmission Date: 20120608
  Serious: Yes (Other)
  Sender: FDA-Public Use
  Company Number: PHHY2011BR29972

PATIENT
  Sex: Female

DRUGS (2)
  1. FORMOTEROL FUMARATE [Suspect]
     Indication: BRONCHITIS
     Dosage: 1 DF, BID
  2. BUDESONIDE [Suspect]
     Indication: BRONCHITIS
     Dosage: 200 UG, UNK

REACTIONS (3)
  - NORMAL NEWBORN [None]
  - ANAESTHETIC COMPLICATION [None]
  - MATERNAL EXPOSURE DURING PREGNANCY [None]
